FAERS Safety Report 20674844 (Version 1)
Quarter: 2022Q2

REPORT INFORMATION
  Report Type: Spontaneous
  Country: US (occurrence: None)
  Receive Date: 20220404
  Receipt Date: 20220404
  Transmission Date: 20220721
  Serious: Yes (Disabling)
  Sender: FDA-Public Use
  Company Number: None

PATIENT
  Age: 38 Year
  Sex: Female
  Weight: 133.65 kg

DRUGS (1)
  1. CIPROFLOXACIN [Suspect]
     Active Substance: CIPROFLOXACIN
     Indication: Urinary tract infection
     Dosage: OTHER QUANTITY : 1 TABLET(S);?FREQUENCY : EVERY 12 HOURS;?
     Route: 048
     Dates: start: 20220327, end: 20220330

REACTIONS (13)
  - Pain [None]
  - Burning sensation [None]
  - Pain in extremity [None]
  - Pain in extremity [None]
  - Tremor [None]
  - Muscle spasms [None]
  - Tremor [None]
  - Headache [None]
  - Dizziness [None]
  - Agitation [None]
  - Heart rate irregular [None]
  - Body temperature abnormal [None]
  - Tinnitus [None]

NARRATIVE: CASE EVENT DATE: 20220330
